FAERS Safety Report 17851790 (Version 1)
Quarter: 2020Q2

REPORT INFORMATION
  Report Type: Spontaneous
  Country: US (occurrence: US)
  Receive Date: 20200602
  Receipt Date: 20200602
  Transmission Date: 20200714
  Serious: No
  Sender: FDA-Public Use
  Company Number: US-TARO-2020TAR00561

PATIENT

DRUGS (1)
  1. IMIQUIMOD CREAM 5% [Suspect]
     Active Substance: IMIQUIMOD
     Indication: PRECANCEROUS CONDITION
     Dosage: UNK
     Route: 067
     Dates: start: 202001

REACTIONS (3)
  - Vulvovaginal burning sensation [Not Recovered/Not Resolved]
  - Off label use [Unknown]
  - Vulvovaginal inflammation [Not Recovered/Not Resolved]

NARRATIVE: CASE EVENT DATE: 202001
